FAERS Safety Report 25215467 (Version 1)
Quarter: 2025Q2

REPORT INFORMATION
  Report Type: Spontaneous
  Country: US (occurrence: US)
  Receive Date: 20250418
  Receipt Date: 20250418
  Transmission Date: 20250716
  Serious: No
  Sender: Phathom Pharmaceuticals
  Company Number: US-PHATHOM PHARMACEUTICALS INC.-2025PHT00112

PATIENT
  Sex: Male
  Weight: 97.324 kg

DRUGS (6)
  1. VOQUEZNA [Suspect]
     Active Substance: VONOPRAZAN FUMARATE
     Indication: Gastrooesophageal reflux disease
     Dosage: 20 MG, 1X/DAY
     Route: 048
     Dates: start: 202410, end: 2025
  2. LABETALOL [Concomitant]
     Active Substance: LABETALOL
  3. TADALAFIL [Concomitant]
     Active Substance: TADALAFIL
  4. OLMESARTAN [Concomitant]
     Active Substance: OLMESARTAN
  5. SUCRALFATE [Concomitant]
     Active Substance: SUCRALFATE
  6. SPIRONOLACTONE AND HYDROCHLOROTHIAZIDE [Concomitant]
     Active Substance: HYDROCHLOROTHIAZIDE\SPIRONOLACTONE

REACTIONS (4)
  - Vision blurred [Recovering/Resolving]
  - Influenza like illness [Recovering/Resolving]
  - Fatigue [Unknown]
  - Headache [Recovering/Resolving]
